FAERS Safety Report 23725015 (Version 5)
Quarter: 2025Q2

REPORT INFORMATION
  Report Type: Spontaneous
  Country: US (occurrence: US)
  Receive Date: 20240410
  Receipt Date: 20250620
  Transmission Date: 20250716
  Serious: No
  Sender: SANOFI AVENTIS
  Company Number: US-SA-SAC20240404000164

PATIENT
  Age: 52 Year
  Sex: Female

DRUGS (1)
  1. DUPIXENT [Suspect]
     Active Substance: DUPILUMAB
     Indication: Eosinophilic oesophagitis
     Dosage: 300 MG, QW
     Route: 058
     Dates: start: 202307

REACTIONS (6)
  - Eructation [Unknown]
  - Diarrhoea [Unknown]
  - Back pain [Unknown]
  - Eosinophilic oesophagitis [Unknown]
  - Arthralgia [Unknown]
  - Injection site reaction [Unknown]
